FAERS Safety Report 9755789 (Version 1)
Quarter: 2013Q4

REPORT INFORMATION
  Report Type: Spontaneous
  Country: US (occurrence: US)
  Receive Date: 20131213
  Receipt Date: 20131213
  Transmission Date: 20140711
  Serious: No
  Sender: FDA-Public Use
  Company Number: US-GLAXOSMITHKLINE-A1024235A

PATIENT
  Age: 41 Year
  Sex: Female

DRUGS (1)
  1. SIMPLY RIGHT CLEAR 21 MG [Suspect]
     Indication: EX-TOBACCO USER
     Dates: start: 201305

REACTIONS (8)
  - Hypersensitivity [Recovered/Resolved]
  - Application site rash [Recovered/Resolved]
  - Application site pain [Recovered/Resolved]
  - Application site pain [Recovered/Resolved]
  - Application site irritation [Recovered/Resolved]
  - Application site erythema [Recovered/Resolved]
  - Application site pain [Recovered/Resolved]
  - Application site reaction [Recovered/Resolved]
